FAERS Safety Report 4364837-X (Version None)
Quarter: 2004Q2

REPORT INFORMATION
  Report Type: 
  Country: None (occurrence: None)
  Receive Date: 20040526
  Receipt Date: 20040316
  Transmission Date: 20050107
  Serious: No
  Sender: FDA-Public Use
  Company Number: US-GLAXOSMITHKLINE-A0503799A

PATIENT
  Age: 32 Year
  Sex: Female

DRUGS (6)
  1. LOTRONEX [Suspect]
     Dosage: 1MG TWICE PER DAY
     Route: 048
     Dates: start: 20000526
  2. PROZAC [Concomitant]
  3. TRINSICON [Concomitant]
  4. MULTI-VITAMIN [Concomitant]
  5. PROTEIN SUPPLEMENT [Concomitant]
  6. PAREGORIC [Concomitant]

REACTIONS (1)
  - DRUG INEFFECTIVE [None]
